FAERS Safety Report 6105953-1 (Version None)
Quarter: 2009Q1

REPORT INFORMATION
  Report Type: 
  Country: None (occurrence: None)
  Receive Date: 20090306
  Receipt Date: 20080320
  Transmission Date: 20090719
  Serious: No
  Sender: FDA-Public Use
  Company Number: US-BRISTOL-MYERS SQUIBB COMPANY-14122089

PATIENT

DRUGS (1)
  1. PACLITAXEL [Suspect]

REACTIONS (1)
  - BACK PAIN [None]
